FAERS Safety Report 5908106-2 (Version None)
Quarter: 2008Q4

REPORT INFORMATION
  Report Type: 
  Country: None (occurrence: None)
  Receive Date: 20081003
  Receipt Date: 20080924
  Transmission Date: 20090506
  Serious: Yes (Other)
  Sender: FDA-Public Use
  Company Number: GR-PFIZER INC-2008081007

PATIENT
  Sex: Female

DRUGS (2)
  1. CELEBREX [Suspect]
  2. EFFEXOR [Suspect]

REACTIONS (2)
  - HALLUCINATION, VISUAL [None]
  - MEDICATION ERROR [None]
